FAERS Safety Report 10786894 (Version 3)
Quarter: 2015Q1

REPORT INFORMATION
  Report Type: Spontaneous
  Country: FR (occurrence: FR)
  Receive Date: 20150211
  Receipt Date: 20150304
  Transmission Date: 20150721
  Serious: Yes (Other)
  Sender: FDA-Public Use
  Company Number: FR-GLAXOSMITHKLINE-FR2015GSK015277

PATIENT
  Age: 67 Year
  Sex: Male
  Weight: 64 kg

DRUGS (8)
  1. CLOPIDOGREL [Concomitant]
     Active Substance: CLOPIDOGREL BISULFATE
  2. CARDENSIEL [Concomitant]
     Active Substance: BISOPROLOL FUMARATE
     Dosage: 5 UNK, UNK
  3. VENTOLINE [Concomitant]
     Active Substance: ALBUTEROL
     Dosage: 100 UNK, UNK
  4. TEMESTA [Concomitant]
     Active Substance: LORAZEPAM
     Dosage: 1 UNK, UNK
  5. TRAMADOL [Concomitant]
     Active Substance: TRAMADOL
     Dosage: 150 UNK, UNK
  6. ESOMEPRAZOLE [Concomitant]
     Active Substance: ESOMEPRAZOLE
  7. SERETIDE [Suspect]
     Active Substance: FLUTICASONE FUROATE\SALMETEROL XINAFOATE
     Indication: LUNG NEOPLASM MALIGNANT
     Dosage: 1 PUFF(S), BID
     Route: 055
     Dates: start: 201309
  8. TERCIAN [Concomitant]
     Active Substance: CYAMEMAZINE
     Dosage: 25 UNK, UNK

REACTIONS (4)
  - Respiratory disorder [Recovered/Resolved]
  - Respiratory distress [Recovered/Resolved]
  - Product quality issue [Recovered/Resolved]
  - Chest discomfort [Recovered/Resolved]

NARRATIVE: CASE EVENT DATE: 20150202
